FAERS Safety Report 18798579 (Version 1)
Quarter: 2021Q1

REPORT INFORMATION
  Report Type: Spontaneous
  Country: CO (occurrence: CO)
  Receive Date: 20210128
  Receipt Date: 20210128
  Transmission Date: 20210419
  Serious: Yes (Other)
  Sender: FDA-Public Use
  Company Number: CO-SA-2021SA026242

PATIENT
  Age: 23 Year
  Sex: Male

DRUGS (8)
  1. DUPIXENT [Suspect]
     Active Substance: DUPILUMAB
     Indication: DERMATITIS ATOPIC
     Dosage: UNK
     Route: 058
     Dates: start: 20201107
  2. METHYLPREDNISOLONE. [Concomitant]
     Active Substance: METHYLPREDNISOLONE
     Dosage: 4 MG
     Route: 048
     Dates: start: 202012, end: 202101
  3. AZATHIOPRINE. [Concomitant]
     Active Substance: AZATHIOPRINE
     Dosage: 100 MG
     Dates: start: 202010
  4. METHYLPREDNISOLONE. [Concomitant]
     Active Substance: METHYLPREDNISOLONE
     Dosage: 8 MG
     Route: 048
     Dates: start: 202011
  5. HYDROXYZINE [Concomitant]
     Active Substance: HYDROXYZINE HYDROCHLORIDE
     Dosage: UNK, QD
     Dates: start: 202010, end: 202012
  6. IVERMECTIN. [Concomitant]
     Active Substance: IVERMECTIN
     Route: 048
  7. METHYLPREDNISOLONE. [Concomitant]
     Active Substance: METHYLPREDNISOLONE
     Indication: DERMATITIS ATOPIC
     Dosage: 16 MG
     Route: 048
     Dates: start: 202010
  8. BILASTINE [Concomitant]
     Active Substance: BILASTINE
     Dosage: UNK, QD
     Dates: start: 202010, end: 202012

REACTIONS (2)
  - Myocardial infarction [Not Recovered/Not Resolved]
  - Hypertension [Not Recovered/Not Resolved]

NARRATIVE: CASE EVENT DATE: 202012
